FAERS Safety Report 20517832 (Version 1)
Quarter: 2022Q1

REPORT INFORMATION
  Report Type: Spontaneous
  Country: US (occurrence: None)
  Receive Date: 20220224
  Receipt Date: 20220224
  Transmission Date: 20220423
  Serious: Yes (Hospitalization)
  Sender: FDA-Public Use
  Company Number: None

PATIENT
  Sex: Female

DRUGS (3)
  1. AMBRISENTAN [Suspect]
     Active Substance: AMBRISENTAN
     Indication: Pulmonary arterial hypertension
     Dosage: FREQUENCY : AS DIRECTED;?
     Route: 048
     Dates: start: 20210129
  2. OFEV [Concomitant]
     Active Substance: NINTEDANIB
  3. UPTRAVI TAB [Concomitant]

REACTIONS (2)
  - Seizure [None]
  - Therapy interrupted [None]
